FAERS Safety Report 24545039 (Version 1)
Quarter: 2024Q4

REPORT INFORMATION
  Report Type: Spontaneous
  Country: US (occurrence: None)
  Receive Date: 20241023
  Receipt Date: 20241023
  Transmission Date: 20250115
  Serious: No
  Sender: Public
  Company Number: None

PATIENT
  Age: 47 Year
  Sex: Male
  Weight: 139.5 kg

DRUGS (5)
  1. HUMIRA [Suspect]
     Active Substance: ADALIMUMAB
     Indication: Ankylosing spondylitis
     Dosage: OTHER FREQUENCY : EVERY 7 DAYS;?
     Route: 058
     Dates: start: 20230109
  2. BACLOFEN [Concomitant]
     Active Substance: BACLOFEN
  3. ESOMEPRAZOLE [Concomitant]
     Active Substance: ESOMEPRAZOLE
  4. METHOTREXATE [Concomitant]
     Active Substance: METHOTREXATE
  5. FOLIC ACID [Concomitant]
     Active Substance: FOLIC ACID

REACTIONS (4)
  - Dyspnoea [None]
  - Dizziness [None]
  - Fatigue [None]
  - Cardiac failure congestive [None]

NARRATIVE: CASE EVENT DATE: 20241001
